FAERS Safety Report 7496178-6 (Version None)
Quarter: 2011Q2

REPORT INFORMATION
  Report Type: 
  Country: None (occurrence: None)
  Receive Date: 20110523
  Receipt Date: 20110511
  Transmission Date: 20111010
  Serious: Yes (Other)
  Sender: FDA-Public Use
  Company Number: PHHY2011US30979

PATIENT
  Sex: Male
  Weight: 59.4 kg

DRUGS (1)
  1. EXJADE [Suspect]
     Indication: THALASSAEMIA
     Dosage: 250 MG, QD
     Route: 048

REACTIONS (1)
  - BLOOD URIC ACID INCREASED [None]
